FAERS Safety Report 4838832-8 (Version None)
Quarter: 2005Q4

REPORT INFORMATION
  Report Type: 
  Country: None (occurrence: None)
  Receive Date: 20051129
  Receipt Date: 20051019
  Transmission Date: 20060501
  Serious: No
  Sender: FDA-Public Use
  Company Number: US-GLAXOSMITHKLINE-A0578839A

PATIENT
  Age: 66 Year
  Sex: Female

DRUGS (2)
  1. COMMIT [Suspect]
     Dates: start: 20051018, end: 20051019
  2. NICORETTE [Suspect]

REACTIONS (4)
  - DRY MOUTH [None]
  - NAUSEA [None]
  - THIRST [None]
  - TOOTH INJURY [None]
